FAERS Safety Report 11622864 (Version 1)
Quarter: 2015Q4

REPORT INFORMATION
  Report Type: Spontaneous
  Country: US (occurrence: US)
  Receive Date: 20151013
  Receipt Date: 20151013
  Transmission Date: 20160304
  Serious: No
  Sender: FDA-Public Use
  Company Number: US-JNJFOC-20150301009

PATIENT
  Age: 12 Month
  Sex: Male

DRUGS (1)
  1. ACETAMINOPHEN INFANTS [Suspect]
     Active Substance: ACETAMINOPHEN
     Indication: ACCIDENTAL EXPOSURE TO PRODUCT
     Dosage: ONCE
     Route: 048
     Dates: start: 20150226, end: 20150226

REACTIONS (1)
  - Accidental exposure to product by child [Unknown]
